FAERS Safety Report 4461286-0 (Version None)
Quarter: 2004Q3

REPORT INFORMATION
  Report Type: 
  Country: None (occurrence: None)
  Receive Date: 20040928
  Receipt Date: 20040920
  Transmission Date: 20050211
  Serious: Yes (Other)
  Sender: FDA-Public Use
  Company Number: US-GLAXOSMITHKLINE-A0526572A

PATIENT
  Age: 24 Year
  Sex: Male

DRUGS (1)
  1. WELLBUTRIN [Suspect]
     Indication: ANXIETY
     Route: 048
     Dates: start: 20010101

REACTIONS (12)
  - AGITATION [None]
  - EUPHORIC MOOD [None]
  - FORMICATION [None]
  - IMPRISONMENT [None]
  - LOSS OF EMPLOYMENT [None]
  - MANIA [None]
  - MEMORY IMPAIRMENT [None]
  - MUSCLE TWITCHING [None]
  - PERSONALITY CHANGE [None]
  - RESTLESSNESS [None]
  - SUICIDAL IDEATION [None]
  - TREMOR [None]
